FAERS Safety Report 7617032-2 (Version None)
Quarter: 2011Q3

REPORT INFORMATION
  Report Type: 
  Country: None (occurrence: None)
  Receive Date: 20110718
  Receipt Date: 20101215
  Transmission Date: 20111222
  Serious: Yes (Hospitalization, Other)
  Sender: FDA-Public Use
  Company Number: US-BAYER-200939991NA

PATIENT
  Age: 60 Year
  Sex: Male
  Weight: 82 kg

DRUGS (21)
  1. TRASYLOL [Suspect]
     Indication: CORONARY ARTERY BYPASS
     Route: 042
     Dates: start: 20051111
  2. LOPRESSOR [Concomitant]
     Dosage: 50 MG, BID
     Route: 048
  3. RED BLOOD CELLS [Concomitant]
     Dosage: UNK
     Dates: start: 20051111
  4. ACETYLSALICYLIC ACID SRT [Concomitant]
     Indication: PRODUCT USED FOR UNKNOWN INDICATION
     Dosage: 81 MG, QD
     Route: 048
  5. LISINOPRIL [Concomitant]
     Dosage: 10 MG, QD
     Route: 048
  6. INSULIN [INSULIN] [Concomitant]
     Dosage: LONG-TERM
     Route: 058
  7. INSULIN [INSULIN] [Concomitant]
     Dosage: UNK
     Route: 042
     Dates: start: 20051111, end: 20051111
  8. PROTAMINE SULFATE [Concomitant]
     Dosage: 3 X PER DAY
     Route: 042
     Dates: start: 20051111, end: 20051111
  9. ACTOS [Concomitant]
  10. POTASSIUM [POTASSIUM] [Concomitant]
     Dosage: 10 MEQ, BID
     Route: 048
  11. METFORMIN HCL [Concomitant]
     Dosage: 1000 MG, BID
     Route: 048
  12. LASIX [Concomitant]
     Dosage: 40 MG, QD
     Route: 042
     Dates: start: 20051108
  13. NEURONTIN [Concomitant]
     Dosage: 300 MG, QID
     Route: 048
  14. CELEXA [Concomitant]
     Dosage: 20 MG ONCE A DAY
     Route: 048
  15. AMIODARONE HCL [Concomitant]
     Dosage: UNK
     Route: 042
     Dates: start: 20051111
  16. LIPITOR [Concomitant]
     Dosage: 20 MG, QD
     Route: 048
  17. LIPITOR [Concomitant]
     Dosage: 40 MG, QD
     Route: 048
     Dates: start: 20051110
  18. HYDRALAZINE HCL [Concomitant]
     Dosage: 10 MG, TID
     Dates: start: 20051110
  19. LASIX [Concomitant]
     Dosage: 20 MG ONCE A DAY
     Route: 048
  20. LEVOPHED [Concomitant]
     Dosage: UNK
     Route: 042
     Dates: start: 20051111
  21. TOPROL-XL [Concomitant]
     Dosage: 50 MG AM, 25 MG PM
     Route: 048
     Dates: start: 20051110

REACTIONS (12)
  - RENAL FAILURE [None]
  - RENAL FAILURE CHRONIC [None]
  - UNEVALUABLE EVENT [None]
  - EMOTIONAL DISTRESS [None]
  - ANXIETY [None]
  - RENAL IMPAIRMENT [None]
  - STRESS [None]
  - FEAR [None]
  - ANHEDONIA [None]
  - RENAL INJURY [None]
  - PAIN [None]
  - INJURY [None]
